FAERS Safety Report 4397308-5 (Version None)
Quarter: 2004Q3

REPORT INFORMATION
  Report Type: 
  Country: None (occurrence: None)
  Receive Date: 20040714
  Receipt Date: 20030507
  Transmission Date: 20050211
  Serious: Yes (Death, Hospitalization)
  Sender: FDA-Public Use
  Company Number: JPKYO-S-20030034

PATIENT
  Age: 58 Year
  Sex: Female

DRUGS (4)
  1. NAVELBINE [Suspect]
     Indication: LUNG ADENOCARCINOMA STAGE IV
     Dosage: 30G CYCLIC
     Route: 042
     Dates: start: 20030121, end: 20030225
  2. TAXOL [Suspect]
     Indication: LUNG ADENOCARCINOMA STAGE IV
     Dosage: 75MG PER DAY
     Dates: start: 20021204, end: 20021227
  3. PARAPLATIN [Suspect]
     Indication: LUNG ADENOCARCINOMA STAGE IV
     Dates: start: 20021204, end: 20021204
  4. GEMZAR [Concomitant]
     Dates: start: 20030121, end: 20030225

REACTIONS (7)
  - APHASIA [None]
  - APRAXIA [None]
  - CEREBRAL ISCHAEMIA [None]
  - HYPERTONIA [None]
  - NEUROSIS [None]
  - TOXIC INDUCED ENCEPHALOPATHY [None]
  - TREMOR [None]
